FAERS Safety Report 7801364-9 (Version None)
Quarter: 2011Q4

REPORT INFORMATION
  Report Type: 
  Country: None (occurrence: None)
  Receive Date: 20111007
  Receipt Date: 20111003
  Transmission Date: 20120403
  Serious: Yes (Other)
  Sender: FDA-Public Use
  Company Number: US-PFIZER INC-2011178683

PATIENT
  Sex: Female

DRUGS (2)
  1. AMIODARONE HCL [Suspect]
     Dosage: UNK
  2. PACERONE [Suspect]
     Dosage: UNK

REACTIONS (4)
  - ARRHYTHMIA [None]
  - THYROID DISORDER [None]
  - FATIGUE [None]
  - DYSPNOEA [None]
